FAERS Safety Report 6167154-0 (Version None)
Quarter: 2009Q2

REPORT INFORMATION
  Report Type: 
  Country: None (occurrence: None)
  Receive Date: 20090424
  Receipt Date: 20090421
  Transmission Date: 20091009
  Serious: Yes (Hospitalization)
  Sender: FDA-Public Use
  Company Number: IT-MERCK-0904ITA00032

PATIENT
  Age: 16 Year
  Sex: Male

DRUGS (1)
  1. PRIMAXIN [Suspect]
     Indication: ALLERGY TEST
     Route: 042
     Dates: start: 20090407, end: 20090407

REACTIONS (5)
  - ANAPHYLACTIC SHOCK [None]
  - BLOOD PRESSURE DECREASED [None]
  - HYPERHIDROSIS [None]
  - PALLOR [None]
  - SENSE OF OPPRESSION [None]
